FAERS Safety Report 17880567 (Version 4)
Quarter: 2020Q3

REPORT INFORMATION
  Report Type: Spontaneous
  Country: US (occurrence: US)
  Receive Date: 20200610
  Receipt Date: 20200718
  Transmission Date: 20201103
  Serious: No
  Sender: FDA-Public Use
  Company Number: US-009507513-2006USA003550

PATIENT
  Age: 21 Year
  Sex: Female
  Weight: 86.62 kg

DRUGS (1)
  1. NEXPLANON [Suspect]
     Active Substance: ETONOGESTREL
     Indication: CONTRACEPTION
     Dosage: ONE ROD EVERY 3 YEARS
     Route: 059
     Dates: start: 20191025, end: 20200708

REACTIONS (5)
  - Weight increased [Unknown]
  - Implant site erythema [Unknown]
  - Implant site scar [Unknown]
  - Implant site inflammation [Recovering/Resolving]
  - Implant site pain [Unknown]

NARRATIVE: CASE EVENT DATE: 201910
